FAERS Safety Report 4328096-6 (Version None)
Quarter: 2004Q1

REPORT INFORMATION
  Report Type: 
  Country: None (occurrence: None)
  Receive Date: 20040325
  Receipt Date: 20040310
  Transmission Date: 20041129
  Serious: Yes (Other)
  Sender: FDA-Public Use
  Company Number: 185503

PATIENT
  Age: 51 Year
  Sex: Female

DRUGS (3)
  1. AVONEX [Suspect]
     Indication: MULTIPLE SCLEROSIS
     Dates: start: 19990101, end: 20040102
  2. BENZAMYCIN [Concomitant]
  3. OGEN [Concomitant]

REACTIONS (5)
  - ASTHENIA [None]
  - CHRONIC HEPATITIS [None]
  - HEPATIC FIBROSIS [None]
  - HEPATIC INFARCTION [None]
  - HEPATIC NECROSIS [None]
